FAERS Safety Report 7348818-X (Version None)
Quarter: 2011Q1

REPORT INFORMATION
  Report Type: 
  Country: None (occurrence: None)
  Receive Date: 20110314
  Receipt Date: 20110302
  Transmission Date: 20110831
  Serious: Yes (Other)
  Sender: FDA-Public Use
  Company Number: US-BAYER-2011-019855

PATIENT
  Sex: Female

DRUGS (1)
  1. MIRENA [Suspect]
     Dosage: UNK
     Dates: start: 20100930, end: 20110302

REACTIONS (3)
  - MEDICAL DEVICE COMPLICATION [None]
  - DEVICE EXPULSION [None]
  - UTERINE POLYP [None]
